FAERS Safety Report 9612558 (Version 1)
Quarter: 2013Q4

REPORT INFORMATION
  Report Type: Spontaneous
  Country: US (occurrence: None)
  Receive Date: 20131008
  Receipt Date: 20131008
  Transmission Date: 20140711
  Serious: Yes (Other)
  Sender: FDA-Public Use
  Company Number: 1247869

PATIENT
  Age: 37 Year
  Sex: Male
  Weight: 108.86 kg

DRUGS (1)
  1. CHLORASEPTIC TOTAL SUGAR-FREE [Suspect]
     Dosage: 1 LOZENGE ORALLY EVERY HOUR X 2
     Route: 048
     Dates: start: 20130905

REACTIONS (6)
  - Muscle twitching [None]
  - Convulsion [None]
  - Paraesthesia [None]
  - Hand-arm vibration syndrome [None]
  - Feeling abnormal [None]
  - Unresponsive to stimuli [None]
